FAERS Safety Report 7683412-2 (Version None)
Quarter: 2011Q3

REPORT INFORMATION
  Report Type: 
  Country: None (occurrence: None)
  Receive Date: 20110812
  Receipt Date: 20110812
  Transmission Date: 20111222
  Serious: Yes (Other)
  Sender: FDA-Public Use
  Company Number: None

PATIENT
  Sex: Female
  Weight: 50.3493 kg

DRUGS (1)
  1. HIZENTRA [Suspect]
     Indication: IMMUNODEFICIENCY
     Dosage: 50 ML INFUSED SUBQ WEEKLY
     Route: 058
     Dates: start: 20101101

REACTIONS (4)
  - INFUSION SITE PRURITUS [None]
  - RESPIRATORY DISTRESS [None]
  - DYSPNOEA [None]
  - COUGH [None]
